FAERS Safety Report 9791713 (Version 1)
Quarter: 2014Q1

REPORT INFORMATION
  Report Type: Spontaneous
  Country: US (occurrence: US)
  Receive Date: 20140102
  Receipt Date: 20140102
  Transmission Date: 20141002
  Serious: Yes (Hospitalization)
  Sender: FDA-Public Use
  Company Number: US-BAYER-2013-159721

PATIENT
  Age: 33 Year
  Sex: Female
  Weight: 139 kg

DRUGS (13)
  1. YASMIN [Suspect]
  2. YAZ [Suspect]
  3. TORADOL [Concomitant]
     Dosage: 60 MG, UNK
     Route: 030
     Dates: start: 20031215
  4. FLEXERIL [Concomitant]
     Dosage: 10 MG, UNK
     Route: 048
     Dates: start: 20031215
  5. DECADRON [Concomitant]
     Dosage: 12 MG, UNK
     Route: 030
     Dates: start: 20031215
  6. VICODIN [Concomitant]
     Dosage: 5/500 Q (EVERY) 4 [HOURS] PRN (AS NEEDED)
  7. TRAMADOL [Concomitant]
     Dosage: 50 MG, UNK
  8. SKELAXIN [Concomitant]
  9. OXYCODONE [Concomitant]
  10. PROPOXYPHENE [Concomitant]
  11. LEVAQUIN [Concomitant]
  12. AUGMENTIN [Concomitant]
  13. PREDNISONE [Concomitant]

REACTIONS (2)
  - Deep vein thrombosis [None]
  - Pulmonary embolism [None]
